FAERS Safety Report 25769029 (Version 1)
Quarter: 2025Q3

REPORT INFORMATION
  Report Type: Spontaneous
  Country: US (occurrence: US)
  Receive Date: 20250905
  Receipt Date: 20250905
  Transmission Date: 20251020
  Serious: Yes (Hospitalization)
  Sender: PROACTIV
  Company Number: US-The Proactiv LLC-2183952

PATIENT
  Sex: Male

DRUGS (5)
  1. PROACTIV SOLUTION RENEWING CLEANSER [Suspect]
     Active Substance: BENZOYL PEROXIDE
  2. PROACTIV REPAIRING TREATMENT [Suspect]
     Active Substance: BENZOYL PEROXIDE
  3. Proactiv Pore Cleansing Brush [Concomitant]
  4. PROACTIV ACNE BODY WASH [Suspect]
     Active Substance: SALICYLIC ACID
  5. PROACTIV REVITALIZING TONER COMBINATION THERAPY ACNE TREATMENT [Suspect]
     Active Substance: SALICYLIC ACID

REACTIONS (1)
  - Hypersensitivity [Unknown]
